FAERS Safety Report 13230796 (Version 1)
Quarter: 2017Q1

REPORT INFORMATION
  Report Type: Spontaneous
  Country: US (occurrence: US)
  Receive Date: 20170214
  Receipt Date: 20170214
  Transmission Date: 20170428
  Serious: No
  Sender: FDA-Public Use
  Company Number: None

PATIENT
  Age: 62 Year
  Sex: Female

DRUGS (1)
  1. SUBOXONE [Suspect]
     Active Substance: BUPRENORPHINE HYDROCHLORIDE\NALOXONE HYDROCHLORIDE

REACTIONS (13)
  - Impaired healing [None]
  - Gingival ulceration [None]
  - Gingival pain [None]
  - Noninfective gingivitis [None]
  - Oral pain [None]
  - Mouth injury [None]
  - Hyperkeratosis [None]
  - Gingival disorder [None]
  - Gingival swelling [None]
  - Fibrosis [None]
  - Paraesthesia oral [None]
  - Immune system disorder [None]
  - Stomatitis [None]
